FAERS Safety Report 5915804-3 (Version None)
Quarter: 2008Q4

REPORT INFORMATION
  Report Type: 
  Country: None (occurrence: None)
  Receive Date: 20081010
  Receipt Date: 20081001
  Transmission Date: 20090506
  Serious: Yes (Hospitalization)
  Sender: FDA-Public Use
  Company Number: FR-ASTRAZENECA-2008CG01437

PATIENT
  Age: 31039 Day
  Sex: Female

DRUGS (12)
  1. FLODIL [Suspect]
     Indication: ARRHYTHMIA
     Route: 048
     Dates: end: 20080211
  2. LOVENOX [Suspect]
     Route: 058
     Dates: start: 20080211
  3. CALCIPARINE [Suspect]
     Route: 058
     Dates: start: 20080212
  4. ZOVIRAX [Suspect]
     Indication: HUMAN HERPESVIRUS 6 INFECTION
     Route: 042
     Dates: start: 20080208, end: 20080212
  5. BISOPROLOL [Suspect]
     Indication: ARRHYTHMIA
     Route: 048
     Dates: end: 20080211
  6. TRIMETAZIDINE [Suspect]
     Route: 048
     Dates: end: 20080211
  7. ATARAX [Suspect]
     Indication: AGITATION
     Route: 041
     Dates: start: 20080211
  8. AUGMENTIN '125' [Suspect]
     Indication: LUNG DISORDER
     Route: 042
     Dates: start: 20080211, end: 20080213
  9. KASKADIL [Suspect]
     Route: 042
     Dates: start: 20080208
  10. PREVISCAN [Concomitant]
     Indication: ARRHYTHMIA
  11. DOLIPRANE [Concomitant]
     Dates: end: 20080210
  12. TIAPRIDAL [Concomitant]
     Dates: start: 20080208, end: 20080208

REACTIONS (1)
  - THROMBOCYTOPENIA [None]
